FAERS Safety Report 13854201 (Version 1)
Quarter: 2017Q3

REPORT INFORMATION
  Report Type: Spontaneous
  Country: US (occurrence: US)
  Receive Date: 20170810
  Receipt Date: 20170810
  Transmission Date: 20171127
  Serious: Yes (Hospitalization)
  Sender: FDA-Public Use
  Company Number: US-GLAXOSMITHKLINE-US2017123042

PATIENT
  Age: 47 Year
  Sex: Female

DRUGS (6)
  1. BREO ELLIPTA [Suspect]
     Active Substance: FLUTICASONE FUROATE\VILANTEROL TRIFENATATE
     Indication: ASTHMA
     Dosage: 1 PUFF(S), 1D
     Dates: start: 201701
  2. AMITRIPTYLLIN [Concomitant]
     Indication: MIGRAINE
     Dosage: UNK UNK, PRN
  3. ABILIFY [Concomitant]
     Active Substance: ARIPIPRAZOLE
  4. AMITRIPTYLLINE [Suspect]
     Active Substance: AMITRIPTYLINE
     Indication: MIGRAINE
     Dosage: UNK UNK, PRN
  5. EFFEXOR [Concomitant]
     Active Substance: VENLAFAXINE HYDROCHLORIDE
  6. CLONOPIN [Concomitant]
     Active Substance: CLONAZEPAM

REACTIONS (6)
  - Labelled drug-drug interaction medication error [Unknown]
  - Hypopnoea [Unknown]
  - Hypersensitivity [Unknown]
  - Asthma [Recovered/Resolved]
  - Dyspnoea [Recovered/Resolved]
  - Heart rate increased [Recovering/Resolving]

NARRATIVE: CASE EVENT DATE: 201703
